FAERS Safety Report 5870871-0 (Version None)
Quarter: 2008Q3

REPORT INFORMATION
  Report Type: 
  Country: None (occurrence: None)
  Receive Date: 20080904
  Receipt Date: 20080825
  Transmission Date: 20090109
  Serious: Yes (Hospitalization)
  Sender: FDA-Public Use
  Company Number: BR-SANOFI-SYNTHELABO-A01200810176

PATIENT
  Age: 73 Year
  Sex: Female

DRUGS (3)
  1. RIVASTIGMINE TARTRATE [Concomitant]
     Indication: DRUG USE FOR UNKNOWN INDICATION
     Dosage: 12 MG
     Route: 065
  2. ZOLPIDEM [Suspect]
     Indication: DRUG USE FOR UNKNOWN INDICATION
     Dosage: SHE RECEIVED 10 MG OF ZOLPIDEM ONLY 12 HOURS BEFORE ADMISSION
     Route: 065
  3. QUETIAPINE [Concomitant]
     Indication: DRUG USE FOR UNKNOWN INDICATION
     Dosage: 12 MG
     Route: 065

REACTIONS (1)
  - HEPATIC ENCEPHALOPATHY [None]
